FAERS Safety Report 19835969 (Version 1)
Quarter: 2021Q3

REPORT INFORMATION
  Report Type: Spontaneous
  Country: BR (occurrence: BR)
  Receive Date: 20210916
  Receipt Date: 20210916
  Transmission Date: 20211014
  Serious: Yes (Death, Hospitalization, Other)
  Sender: FDA-Public Use
  Company Number: BR-009507513-2109BRA003290

PATIENT
  Age: 83 Year
  Sex: Male
  Weight: 82.6 kg

DRUGS (3)
  1. CARBOPLATIN. [Suspect]
     Active Substance: CARBOPLATIN
     Indication: LUNG CARCINOMA CELL TYPE UNSPECIFIED STAGE IV
     Dosage: ONCE
     Route: 042
  2. PEMETREXEDE DISSODICO [PEMETREXED DISODIUM] [Suspect]
     Active Substance: PEMETREXED DISODIUM
     Indication: LUNG CARCINOMA CELL TYPE UNSPECIFIED STAGE IV
     Dosage: ONCE
     Route: 042
  3. KEYTRUDA [Suspect]
     Active Substance: PEMBROLIZUMAB
     Indication: LUNG CARCINOMA CELL TYPE UNSPECIFIED STAGE IV
     Dosage: 200 MILLIGRAM
     Route: 042
     Dates: start: 20210504

REACTIONS (6)
  - Back pain [Unknown]
  - Agitation [Unknown]
  - Pancytopenia [Unknown]
  - Myoclonus [Unknown]
  - Renal impairment [Unknown]
  - Malignant neoplasm progression [Fatal]

NARRATIVE: CASE EVENT DATE: 202105
